FAERS Safety Report 24013349 (Version 1)
Quarter: 2024Q2

REPORT INFORMATION
  Report Type: Spontaneous
  Country: US (occurrence: US)
  Receive Date: 20240626
  Receipt Date: 20240626
  Transmission Date: 20240716
  Serious: No
  Sender: FDA-Public Use
  Company Number: US-ROCHE-3573458

PATIENT
  Age: 38 Year
  Sex: Female

DRUGS (10)
  1. TRASTUZUMAB [Suspect]
     Active Substance: TRASTUZUMAB
     Indication: Mucinous breast carcinoma
     Route: 065
  2. ADO-TRASTUZUMAB EMTANSINE [Suspect]
     Active Substance: ADO-TRASTUZUMAB EMTANSINE
     Indication: Mucinous breast carcinoma
     Route: 065
  3. TAMOXIFEN [Suspect]
     Active Substance: TAMOXIFEN
     Indication: Mucinous breast carcinoma
     Route: 065
  4. LAPATINIB [Concomitant]
     Active Substance: LAPATINIB
     Dosage: FOR 12 MONTHS
     Route: 065
  5. GEMCITABINE [Concomitant]
     Active Substance: GEMCITABINE
     Route: 065
  6. ZOMETA [Concomitant]
     Active Substance: ZOLEDRONIC ACID
     Route: 065
  7. GOSERELIN [Concomitant]
     Active Substance: GOSERELIN
  8. ANASTROZOLE [Concomitant]
     Active Substance: ANASTROZOLE
  9. CAPECITABINE [Concomitant]
     Active Substance: CAPECITABINE
  10. NERATINIB [Concomitant]
     Active Substance: NERATINIB

REACTIONS (1)
  - Disease progression [Recovering/Resolving]
